FAERS Safety Report 10172746 (Version 1)
Quarter: 2014Q2

REPORT INFORMATION
  Report Type: Spontaneous
  Country: US (occurrence: None)
  Receive Date: 20140416
  Receipt Date: 20140416
  Transmission Date: 20141212
  Serious: No
  Sender: FDA-Public Use
  Company Number: 163-POMAL-13123346

PATIENT
  Age: 74 Year
  Sex: Male

DRUGS (4)
  1. POMALYST (POMALIDOMIDE) (CAPSULES) [Suspect]
     Indication: PLASMA CELL MYELOMA
     Dosage: 4 MG, 21 IN 21 D, PO
     Route: 048
     Dates: start: 20130314
  2. METHADONE HCL (METHADONE HYDROCHLORIDE) (UNKNOWN) [Concomitant]
  3. LORTAB (VICODIN) (UNKNOWN) [Concomitant]
  4. GABAPENTIN (GABAPENTIN) (UNKNOWN) (GABAPENTIN) [Concomitant]

REACTIONS (2)
  - Drug administration error [None]
  - No adverse event [None]
